FAERS Safety Report 23201564 (Version 1)
Quarter: 2023Q4

REPORT INFORMATION
  Report Type: Spontaneous
  Country: FR (occurrence: FR)
  Receive Date: 20231118
  Receipt Date: 20231118
  Transmission Date: 20240110
  Serious: Yes (Other)
  Sender: FDA-Public Use
  Company Number: None

PATIENT
  Age: 67 Year
  Sex: Female
  Weight: 96 kg

DRUGS (12)
  1. OFLOXACIN [Suspect]
     Active Substance: OFLOXACIN
     Indication: Medical device site joint infection
     Dosage: DOSE:800MG,FREQUENCY TIME:1 DAYS,DURATION:121 DAYS
     Route: 065
     Dates: start: 20210722, end: 20211120
  2. LEVOFLOXACIN [Suspect]
     Active Substance: LEVOFLOXACIN
     Indication: Medical device site joint infection
     Dosage: UNIT DOSE:500MG,FREQUENCY TIME:1 DAYS,DURATION:1 MONTHS
     Route: 065
     Dates: start: 202106, end: 202107
  3. RIFAMPIN [Suspect]
     Active Substance: RIFAMPIN
     Indication: Medical device site joint infection
     Dosage: UNIT DOSE:900MG,FREQUENCY TIME:1 DAY,DURATION:1 MONTH
     Dates: start: 202106, end: 202107
  4. CLINDAMYCIN [Suspect]
     Active Substance: CLINDAMYCIN
     Indication: Medical device site joint infection
     Dosage: DURATION:121 DAYS
     Dates: start: 20210722, end: 20211120
  5. TAZOBACTAM [Suspect]
     Active Substance: TAZOBACTAM
     Indication: Medical device site joint infection
     Dosage: UNIT DOSE:2GRAM,FREQUENCY TIME:1 DAYS
     Dates: start: 20210609, end: 202106
  6. DAPTOMYCIN [Suspect]
     Active Substance: DAPTOMYCIN
     Indication: Medical device site joint infection
     Dosage: UNIT DOSE:1 GRAM, FREQUENCY TIME:1 DAYS, DURATION: 1MMONTHS
     Dates: start: 202106, end: 202107
  7. PIPERACILLIN SODIUM [Suspect]
     Active Substance: PIPERACILLIN SODIUM
     Indication: Medical device site joint infection
     Dosage: UNIT DOSE:16 GRAM,FREQUENCY  TIME:1 DAYS
     Dates: start: 20210609, end: 202106
  8. ATORVASTATIN [Concomitant]
     Active Substance: ATORVASTATIN
     Indication: Product used for unknown indication
  9. GABAPENTIN [Concomitant]
     Active Substance: GABAPENTIN
     Indication: Product used for unknown indication
  10. METFORMIN\SITAGLIPTIN [Concomitant]
     Active Substance: METFORMIN\SITAGLIPTIN
     Indication: Product used for unknown indication
  11. DULOXETINE HYDROCHLORIDE [Concomitant]
     Active Substance: DULOXETINE HYDROCHLORIDE
     Indication: Product used for unknown indication
  12. BUMETANIDE [Concomitant]
     Active Substance: BUMETANIDE
     Indication: Product used for unknown indication

REACTIONS (5)
  - Asthenia [Not Recovered/Not Resolved]
  - Disturbance in attention [Not Recovered/Not Resolved]
  - Pain [Not Recovered/Not Resolved]
  - Insomnia [Not Recovered/Not Resolved]
  - Dizziness [Not Recovered/Not Resolved]

NARRATIVE: CASE EVENT DATE: 20210615
